FAERS Safety Report 22277468 (Version 2)
Quarter: 2023Q2

REPORT INFORMATION
  Report Type: Report from Study
  Country: TW (occurrence: TW)
  Receive Date: 20230503
  Receipt Date: 20230601
  Transmission Date: 20230722
  Serious: Yes (Death, Hospitalization)
  Sender: FDA-Public Use
  Company Number: TW-002147023-NVSC2023TW065405

PATIENT
  Age: 76 Year
  Sex: Male

DRUGS (1)
  1. PLUVICTO [Suspect]
     Active Substance: LUTETIUM LU-177 VIPIVOTIDE TETRAXETAN
     Indication: Hormone-refractory prostate cancer
     Dosage: 200 MCI
     Route: 042
     Dates: start: 20230302, end: 20230302

REACTIONS (4)
  - Pneumonia aspiration [Fatal]
  - Pain [Unknown]
  - Pyrexia [Recovering/Resolving]
  - Drug ineffective [Unknown]

NARRATIVE: CASE EVENT DATE: 20230305
